FAERS Safety Report 6342994-3 (Version None)
Quarter: 2009Q3

REPORT INFORMATION
  Report Type: 
  Country: None (occurrence: None)
  Receive Date: 20090908
  Receipt Date: 20090805
  Transmission Date: 20100115
  Serious: No
  Sender: FDA-Public Use
  Company Number: US-BAYER-200929228NA

PATIENT
  Sex: Female

DRUGS (1)
  1. CIPRO [Suspect]
     Indication: BACTERIAL INFECTION
     Dosage: TOTAL DAILY DOSE: 500 MG  UNIT DOSE: 500 MG
     Dates: start: 20090803

REACTIONS (4)
  - CHEST DISCOMFORT [None]
  - DIZZINESS [None]
  - NAUSEA [None]
  - VOMITING [None]
